APPROVED DRUG PRODUCT: PROPOXYPHENE NAPSYLATE AND ACETAMINOPHEN
Active Ingredient: ACETAMINOPHEN; PROPOXYPHENE NAPSYLATE
Strength: 650MG;100MG
Dosage Form/Route: TABLET;ORAL
Application: A076609 | Product #001
Applicant: WATSON LABORATORIES INC FLORIDA
Approved: Nov 16, 2004 | RLD: No | RS: No | Type: DISCN